FAERS Safety Report 21616441 (Version 1)
Quarter: 2022Q4

REPORT INFORMATION
  Report Type: Spontaneous
  Country: GB (occurrence: GB)
  Receive Date: 20221118
  Receipt Date: 20221118
  Transmission Date: 20230113
  Serious: Yes (Hospitalization)
  Sender: FDA-Public Use
  Company Number: None

PATIENT
  Sex: Female

DRUGS (1)
  1. OCRELIZUMAB [Suspect]
     Active Substance: OCRELIZUMAB
     Indication: Relapsing-remitting multiple sclerosis
     Route: 065
     Dates: start: 20191203, end: 20211220

REACTIONS (3)
  - Janus kinase 2 mutation [Not Recovered/Not Resolved]
  - Portal vein thrombosis [Unknown]
  - Mesenteric vein thrombosis [Unknown]

NARRATIVE: CASE EVENT DATE: 20211210
